FAERS Safety Report 8554194-7 (Version None)
Quarter: 2012Q3

REPORT INFORMATION
  Report Type: 
  Country: None (occurrence: None)
  Receive Date: 20120731
  Receipt Date: 20120718
  Transmission Date: 20120928
  Serious: Yes (Hospitalization, Other)
  Sender: FDA-Public Use
  Company Number: US-ELI_LILLY_AND_COMPANY-US201205006391

PATIENT
  Sex: Male
  Weight: 96.599 kg

DRUGS (9)
  1. HUMALOG MIX 75/25 [Suspect]
     Dosage: 10 U, BID
     Route: 058
     Dates: start: 20100620
  2. LEVEMIR [Concomitant]
     Dosage: 55 U, EACH MORNING
  3. DIPROLENE AF [Concomitant]
     Dosage: UNK, QD
     Dates: start: 20120418
  4. HUMALOG MIX 75/25 [Suspect]
     Indication: DIABETES MELLITUS
     Dosage: 12 U, BID
     Dates: start: 20090101
  5. LEVEMIR [Concomitant]
     Dosage: 50 U, EACH EVENING
     Dates: start: 20120418
  6. LISINOPRIL [Concomitant]
     Dosage: 5 MG, QD
     Dates: start: 20110620
  7. LIPITOR [Concomitant]
     Dosage: 20 MG, QD
     Dates: start: 20110620
  8. VIAGRA [Concomitant]
     Dosage: 50 MG, PRN
     Dates: start: 20120517
  9. TENORMIN [Concomitant]
     Dosage: 25 MG, EACH EVENING
     Dates: start: 20120517

REACTIONS (9)
  - VITRECTOMY [None]
  - LEUKAEMIA [None]
  - BLOOD PRESSURE INCREASED [None]
  - BLINDNESS TRANSIENT [None]
  - EYE HAEMORRHAGE [None]
  - APPENDICECTOMY [None]
  - CATARACT [None]
  - EAR DISORDER [None]
  - HEART RATE INCREASED [None]
